FAERS Safety Report 9551653 (Version 1)
Quarter: 2013Q3

REPORT INFORMATION
  Report Type: Spontaneous
  Country: US (occurrence: US)
  Receive Date: 20130925
  Receipt Date: 20130925
  Transmission Date: 20140515
  Serious: Yes (Hospitalization, Other)
  Sender: FDA-Public Use
  Company Number: US-SANOFI-AVENTIS-2013SA093119

PATIENT
  Age: 76 Year
  Sex: Female

DRUGS (4)
  1. LANTUS [Suspect]
     Indication: DIABETES MELLITUS
     Dosage: DOSE:60 UNIT(S)
     Route: 058
  2. LANTUS [Suspect]
     Indication: DIABETES MELLITUS
     Dosage: DOSE:80 UNIT(S)
     Route: 058
  3. APIDRA [Suspect]
     Dosage: DOSE:60 UNIT(S)
     Route: 058
  4. APIDRA [Suspect]
     Dosage: DOSE:26 UNIT(S)
     Route: 058

REACTIONS (4)
  - Foot fracture [Not Recovered/Not Resolved]
  - Pneumonia [Not Recovered/Not Resolved]
  - Oxygen saturation decreased [Not Recovered/Not Resolved]
  - Coma [Not Recovered/Not Resolved]
